FAERS Safety Report 12880599 (Version 2)
Quarter: 2016Q4

REPORT INFORMATION
  Report Type: Spontaneous
  Country: JP (occurrence: JP)
  Receive Date: 20161025
  Receipt Date: 20161201
  Transmission Date: 20170207
  Serious: Yes (Death)
  Sender: FDA-Public Use
  Company Number: JP-SUNOVION-2016SUN002656

PATIENT
  Age: 8 Decade
  Sex: Female

DRUGS (1)
  1. LUNESTA [Suspect]
     Active Substance: ESZOPICLONE
     Indication: INSOMNIA
     Dosage: 7 MG, SINGLE
     Route: 048

REACTIONS (2)
  - Overdose [Unknown]
  - Completed suicide [Fatal]
